FAERS Safety Report 9251440 (Version 1)
Quarter: 2013Q2

REPORT INFORMATION
  Report Type: Spontaneous
  Country: CN (occurrence: CN)
  Receive Date: 20130424
  Receipt Date: 20130424
  Transmission Date: 20140414
  Serious: Yes (Other)
  Sender: FDA-Public Use
  Company Number: CN-PFIZER INC-2013125807

PATIENT
  Age: 90 Year
  Sex: Female

DRUGS (4)
  1. DIFLUCAN [Suspect]
     Indication: LUNG INFECTION
     Dosage: 200 MG, 2X/DAY
     Route: 048
     Dates: start: 201304, end: 201304
  2. DIFLUCAN [Suspect]
     Indication: LUNG INFECTION
     Dosage: 200 MG, DAILY
     Route: 041
     Dates: start: 201304, end: 201304
  3. SOLU-MEDROL [Suspect]
     Dosage: 40 MG, SINGLE
     Dates: start: 20130417, end: 20130417
  4. LEVOFLOXACIN [Concomitant]
     Dosage: UNK

REACTIONS (1)
  - Epilepsy [Recovered/Resolved]
